FAERS Safety Report 7179906-9 (Version None)
Quarter: 2010Q4

REPORT INFORMATION
  Report Type: 
  Country: None (occurrence: None)
  Receive Date: 20101221
  Receipt Date: 20101210
  Transmission Date: 20110411
  Serious: Yes (Hospitalization)
  Sender: FDA-Public Use
  Company Number: US-ACTELION-A-US2010-42562

PATIENT

DRUGS (20)
  1. BOSENTAN TABLET 125 MG US [Suspect]
     Indication: PULMONARY ARTERIAL HYPERTENSION
     Dosage: 125 MG, BID
     Route: 048
     Dates: start: 20100209, end: 20100818
  2. BOSENTAN TABLET 125 MG US [Suspect]
     Dosage: 62.5 MG, BID
     Route: 048
     Dates: start: 20091201, end: 20100208
  3. ASPIRIN [Concomitant]
  4. ALBUTEROL [Concomitant]
  5. METHOTREXATE [Concomitant]
  6. FOLIC ACID [Concomitant]
  7. DIAZEPAM [Concomitant]
  8. LASIX [Concomitant]
  9. HYDROXYCHLOROQUINE [Concomitant]
  10. OMEPRAZOLE [Concomitant]
  11. SEROQUEL [Concomitant]
  12. SINGULAIR [Concomitant]
  13. LOMOTIL [Concomitant]
  14. CALCIFEDIOL [Concomitant]
  15. DOXEPIN HCL [Concomitant]
  16. LORTAB [Concomitant]
  17. DIGOXIN [Concomitant]
  18. ALDACTONE [Concomitant]
  19. TREPROSTINIL [Concomitant]
  20. PREDNISONE [Concomitant]

REACTIONS (7)
  - ABDOMINAL PAIN [None]
  - BIOPSY LIVER ABNORMAL [None]
  - DIZZINESS [None]
  - HEPATITIS [None]
  - LIVER FUNCTION TEST ABNORMAL [None]
  - NAUSEA [None]
  - VOMITING [None]
